FAERS Safety Report 4439888-7 (Version None)
Quarter: 2004Q3

REPORT INFORMATION
  Report Type: 
  Country: None (occurrence: None)
  Receive Date: 20040902
  Receipt Date: 20040825
  Transmission Date: 20050211
  Serious: Yes (Hospitalization, Disabling)
  Sender: FDA-Public Use
  Company Number: US-MERCK-0408USA01969

PATIENT
  Age: 57 Year
  Sex: Male

DRUGS (2)
  1. FOSAMAX [Suspect]
     Route: 048
     Dates: start: 19960101, end: 20000101
  2. FOSAMAX [Suspect]
     Route: 048
     Dates: start: 20000101, end: 20030101

REACTIONS (5)
  - FALL [None]
  - FEMUR FRACTURE [None]
  - FRACTURE NONUNION [None]
  - SPINAL COMPRESSION FRACTURE [None]
  - STRESS FRACTURE [None]
